FAERS Safety Report 25915338 (Version 1)
Quarter: 2025Q4

REPORT INFORMATION
  Report Type: Spontaneous
  Country: US (occurrence: US)
  Receive Date: 20251013
  Receipt Date: 20251013
  Transmission Date: 20260118
  Serious: Yes (Other)
  Sender: ANI
  Company Number: US-ANIPHARMA-2025-US-031894

PATIENT
  Age: 66 Year
  Sex: Male

DRUGS (1)
  1. CORTICOTROPIN [Suspect]
     Active Substance: CORTICOTROPIN
     Indication: Nephrotic syndrome
     Dosage: 80 UNITS TWO TIMES PER WEEK / CURRENTLY TAKING 40 UNITS ONCE A WEEK AND WILL INCREASE TO 4 UNITS TWI
     Route: 058
     Dates: start: 202506

REACTIONS (2)
  - Insomnia [Unknown]
  - Hypertension [Unknown]
